FAERS Safety Report 7729092-9 (Version None)
Quarter: 2011Q3

REPORT INFORMATION
  Report Type: 
  Country: None (occurrence: None)
  Receive Date: 20110906
  Receipt Date: 20110822
  Transmission Date: 20111222
  Serious: Yes (Other)
  Sender: FDA-Public Use
  Company Number: US-JNJFOC-20110812673

PATIENT

DRUGS (1)
  1. METHYLPHENIDATE HCL [Suspect]
     Indication: PRODUCT USED FOR UNKNOWN INDICATION
     Dosage: NDC # 00591271801
     Route: 048

REACTIONS (3)
  - TREMOR [None]
  - IMPAIRED DRIVING ABILITY [None]
  - MOBILITY DECREASED [None]
